FAERS Safety Report 20361180 (Version 1)
Quarter: 2022Q1

REPORT INFORMATION
  Report Type: Report from Study
  Country: US (occurrence: US)
  Receive Date: 20220121
  Receipt Date: 20220121
  Transmission Date: 20220423
  Serious: Yes (Other)
  Sender: FDA-Public Use
  Company Number: US-SHIRE-US202007647

PATIENT
  Age: 38 Year
  Sex: Female

DRUGS (1)
  1. HUMAN IMMUNOGLOBULIN G [Suspect]
     Active Substance: HUMAN IMMUNOGLOBULIN G
     Indication: Primary immunodeficiency syndrome
     Dosage: 55 GRAM
     Route: 042

REACTIONS (7)
  - Systemic lupus erythematosus [Unknown]
  - Inflammatory marker increased [Unknown]
  - Foot fracture [Unknown]
  - Fall [Unknown]
  - Product dose omission issue [Unknown]
  - Inability to afford medication [Unknown]
  - COVID-19 [Unknown]

NARRATIVE: CASE EVENT DATE: 20200226
